FAERS Safety Report 9305627 (Version 1)
Quarter: 2013Q2

REPORT INFORMATION
  Report Type: Spontaneous
  Country: US (occurrence: None)
  Receive Date: 20130522
  Receipt Date: 20130522
  Transmission Date: 20140414
  Serious: Yes (Other)
  Sender: FDA-Public Use
  Company Number: None

PATIENT
  Age: 24 Year
  Sex: Female

DRUGS (7)
  1. GILENYA [Suspect]
     Indication: MULTIPLE SCLEROSIS
     Route: 048
     Dates: start: 20130312, end: 20130419
  2. FLUOXETINE 20 MG [Concomitant]
  3. GILENYA 0.5 MG CAPSULE [Concomitant]
  4. ORSYTHIA 20 MCG-100 MCG TABLET [Concomitant]
  5. MECLIZINE 25 MG TABLET [Concomitant]
  6. ZOFRAN [Concomitant]
  7. VITAMIN D3 [Concomitant]

REACTIONS (3)
  - Vertigo [None]
  - Brain neoplasm [None]
  - Vision blurred [None]
